FAERS Safety Report 6552598-5 (Version None)
Quarter: 2010Q1

REPORT INFORMATION
  Report Type: 
  Country: None (occurrence: None)
  Receive Date: 20100126
  Receipt Date: 20100115
  Transmission Date: 20100710
  Serious: Yes (Death, Other)
  Sender: FDA-Public Use
  Company Number: US-BAXTER-2010BH001201

PATIENT
  Sex: Female

DRUGS (1)
  1. HEPARIN SODIUM INJECTION [Suspect]
     Indication: DRUG USE FOR UNKNOWN INDICATION
     Route: 065
     Dates: start: 20080101

REACTIONS (5)
  - ARTERIAL THROMBOSIS [None]
  - DEATH [None]
  - HAEMODYNAMIC INSTABILITY [None]
  - HYPERCOAGULATION [None]
  - MULTI-ORGAN FAILURE [None]
